FAERS Safety Report 9381795 (Version 2)
Quarter: 2013Q3

REPORT INFORMATION
  Report Type: Spontaneous
  Country: JP (occurrence: JP)
  Receive Date: 20130703
  Receipt Date: 20130725
  Transmission Date: 20140515
  Serious: No
  Sender: FDA-Public Use
  Company Number: JP-PFIZER INC-2013190763

PATIENT
  Age: 62 Year
  Sex: Male
  Weight: 53.4 kg

DRUGS (7)
  1. VFEND [Suspect]
     Indication: SYSTEMIC MYCOSIS
     Dosage: 300 MG, 2X/DAY
     Route: 048
     Dates: start: 20120717, end: 20120718
  2. VFEND [Interacting]
     Dosage: 200 MG, 2X/DAY
     Route: 048
     Dates: start: 20120719
  3. OXYCONTIN [Interacting]
     Indication: SPINAL PAIN
     Dosage: 40 MG/DAY
     Route: 048
     Dates: start: 20120607, end: 20120703
  4. OXYCONTIN [Interacting]
     Indication: PLASMA CELL MYELOMA
     Dosage: 60 MG/DAY
     Route: 048
     Dates: start: 20120704, end: 20120719
  5. OXYCONTIN [Interacting]
     Dosage: 40 MG/DAY
     Route: 048
     Dates: start: 20120720
  6. VANCOMYCIN [Concomitant]
     Dosage: UNK
     Dates: start: 20120706
  7. MEROPENEM [Concomitant]
     Indication: PNEUMONIA
     Dosage: UNK
     Dates: start: 20130703

REACTIONS (2)
  - Drug interaction [Recovered/Resolved]
  - Somnolence [Recovered/Resolved]
